FAERS Safety Report 15378252 (Version 1)
Quarter: 2018Q3

REPORT INFORMATION
  Report Type: Spontaneous
  Country: US (occurrence: US)
  Receive Date: 20180906
  Receipt Date: 20180906
  Transmission Date: 20181010
  Serious: Yes (Hospitalization)
  Sender: FDA-Public Use
  Company Number: None

PATIENT
  Age: 59 Year
  Sex: Male

DRUGS (2)
  1. MITOTANE [Suspect]
     Active Substance: MITOTANE
     Indication: ADRENOCORTICAL CARCINOMA
     Dosage: ?          OTHER DOSE:2 TAB;?
     Route: 048
     Dates: start: 20180717, end: 20180816
  2. ETOPOSIDE. [Suspect]
     Active Substance: ETOPOSIDE
     Indication: ADRENOCORTICAL CARCINOMA
     Route: 042
     Dates: start: 20180717, end: 20180720

REACTIONS (3)
  - Chills [None]
  - Febrile neutropenia [None]
  - Night sweats [None]

NARRATIVE: CASE EVENT DATE: 20180802
